FAERS Safety Report 14849202 (Version 2)
Quarter: 2019Q3

REPORT INFORMATION
  Report Type: Report from Study
  Country: GB (occurrence: GB)
  Receive Date: 20180504
  Receipt Date: 20190806
  Transmission Date: 20191004
  Serious: Yes (Death, Hospitalization)
  Sender: FDA-Public Use
  Company Number: PHHY2018GB002060

PATIENT
  Age: 74 Year
  Sex: Male
  Weight: 72.5 kg

DRUGS (6)
  1. SIMVASTATIN. [Concomitant]
     Active Substance: SIMVASTATIN
     Indication: ATRIAL FIBRILLATION
     Dosage: 40 MG, QD
     Route: 065
     Dates: start: 20171216
  2. CODEINE PHOSPHATE [Concomitant]
     Active Substance: CODEINE PHOSPHATE
     Indication: ANALGESIC THERAPY
     Dosage: 15 MG, PRN
     Route: 065
     Dates: start: 20171216
  3. WARFARIN [Concomitant]
     Active Substance: WARFARIN
     Indication: LEFT VENTRICULAR DYSFUNCTION
     Dosage: 1 MG, QD
     Route: 065
     Dates: start: 20171216
  4. ENTRESTO [Suspect]
     Active Substance: SACUBITRIL\VALSARTAN
     Indication: CARDIAC FAILURE
     Dosage: 1 DF (SACUBITRIL 24 MG/ VALSARTAN 26 MG), BID
     Route: 065
     Dates: start: 20170721, end: 20180116
  5. DIGOXIN. [Concomitant]
     Active Substance: DIGOXIN
     Indication: ATRIAL FIBRILLATION
     Dosage: 125 UG, QD
     Route: 065
     Dates: start: 20171216
  6. SERTRALINE [Concomitant]
     Active Substance: SERTRALINE HYDROCHLORIDE
     Indication: DEPRESSION
     Dosage: 50 MG, QD
     Route: 065
     Dates: start: 20171216

REACTIONS (3)
  - General physical health deterioration [Recovering/Resolving]
  - Lung neoplasm malignant [Fatal]
  - Diarrhoea [Recovered/Resolved]

NARRATIVE: CASE EVENT DATE: 20171216
